FAERS Safety Report 6646586-8 (Version None)
Quarter: 2010Q1

REPORT INFORMATION
  Report Type: 
  Country: None (occurrence: None)
  Receive Date: 20100317
  Receipt Date: 20100304
  Transmission Date: 20100710
  Serious: Yes (Other)
  Sender: FDA-Public Use
  Company Number: 008440

PATIENT
  Sex: Female
  Weight: 60.6 kg

DRUGS (12)
  1. CERTOLIZUMAB PEGOL [Suspect]
     Indication: RHEUMATOID ARTHRITIS
     Dosage: (400 MG 1X/2 WEEKS SUBCUTANEOUS), (200 MG 1X/2 WEEKS SUBCUTNEOUS)
     Route: 058
     Dates: start: 20090824, end: 20090921
  2. CERTOLIZUMAB PEGOL [Suspect]
     Indication: RHEUMATOID ARTHRITIS
     Dosage: (400 MG 1X/2 WEEKS SUBCUTANEOUS), (200 MG 1X/2 WEEKS SUBCUTNEOUS)
     Route: 058
     Dates: start: 20091005
  3. PREDNISONE TAB [Concomitant]
  4. FOLIC ACID [Concomitant]
  5. ZOLOFT [Concomitant]
  6. CALCIUM CARBONATE W/VITAMIN D /00944201/ [Concomitant]
  7. ASPIRIN [Concomitant]
  8. AMITRIPTYLINE HCL [Concomitant]
  9. METOPROLOL SUCCINATE [Concomitant]
  10. PHENERGAN /00033001/ [Concomitant]
  11. LORTAB [Concomitant]
  12. ALBUTEROL /00139501/ [Concomitant]

REACTIONS (3)
  - BRONCHITIS [None]
  - ESCHERICHIA URINARY TRACT INFECTION [None]
  - PATHOGEN RESISTANCE [None]
